FAERS Safety Report 9969545 (Version 2)
Quarter: 2014Q1

REPORT INFORMATION
  Report Type: Report from Study
  Country: GB (occurrence: GB)
  Receive Date: 20140306
  Receipt Date: 20140306
  Transmission Date: 20141002
  Serious: Yes (Death, Hospitalization)
  Sender: FDA-Public Use
  Company Number: GB-ROCHE-685487

PATIENT
  Age: 81 Year
  Sex: Female
  Weight: 80 kg

DRUGS (9)
  1. RITUXIMAB [Suspect]
     Indication: RHEUMATOID ARTHRITIS
     Dosage: DOSAGE REPORTED AS 1000 (NO UNITS PROVIDED)
     Route: 065
  2. METHOTREXATE [Concomitant]
  3. PREDNISOLONE [Concomitant]
  4. CALCICHEW [Concomitant]
  5. CO-AMILOFRUSE [Concomitant]
  6. CO-CODAMOL [Concomitant]
  7. FOLIC ACID [Concomitant]
  8. MELOXICAM [Concomitant]
  9. ZOTON [Concomitant]

REACTIONS (2)
  - Cerebrovascular accident [Fatal]
  - Pneumonia [Fatal]
